FAERS Safety Report 19480782 (Version 2)
Quarter: 2021Q3

REPORT INFORMATION
  Report Type: Report from Study
  Country: US (occurrence: US)
  Receive Date: 20210630
  Receipt Date: 20210901
  Transmission Date: 20211014
  Serious: Yes (Death)
  Sender: FDA-Public Use
  Company Number: US-PFIZER INC-2021795403

PATIENT

DRUGS (1)
  1. OXALIPLATIN. [Suspect]
     Active Substance: OXALIPLATIN
     Indication: GASTROOESOPHAGEAL CANCER
     Dosage: 130 MG/M?, DAY 1, EVERY 3 WEEKS; OR 85 MG/M?, DAY 1, EVERY 2 WEEKS
     Route: 042

REACTIONS (1)
  - Pneumonitis [Fatal]
